FAERS Safety Report 10191316 (Version 1)
Quarter: 2014Q2

REPORT INFORMATION
  Report Type: Spontaneous
  Country: US (occurrence: None)
  Receive Date: 20140522
  Receipt Date: 20140522
  Transmission Date: 20141212
  Serious: Yes (Other)
  Sender: FDA-Public Use
  Company Number: None

PATIENT
  Age: 62 Year
  Sex: Female
  Weight: 59.88 kg

DRUGS (1)
  1. FLUOXETINE [Suspect]
     Indication: DEPRESSION
     Dosage: 2 CAPSULE DAILY ONCE DAILY TAKEN BY MOUTH
     Route: 048
     Dates: start: 20140330, end: 20140402

REACTIONS (2)
  - Malaise [None]
  - Product substitution issue [None]
